FAERS Safety Report 10450577 (Version 1)
Quarter: 2014Q3

REPORT INFORMATION
  Report Type: Spontaneous
  Country: US (occurrence: None)
  Receive Date: 20140911
  Receipt Date: 20140911
  Transmission Date: 20150326
  Serious: No
  Sender: FDA-Public Use
  Company Number: None

PATIENT
  Age: 83 Year
  Sex: Male
  Weight: 70 kg

DRUGS (14)
  1. LIDODERM [Concomitant]
     Active Substance: LIDOCAINE
  2. LORAZEPAM. [Concomitant]
     Active Substance: LORAZEPAM
  3. NEXIUM [Concomitant]
     Active Substance: ESOMEPRAZOLE MAGNESIUM
  4. RITUXIMAB [Suspect]
     Active Substance: RITUXIMAB
  5. ASPIRIN. [Concomitant]
     Active Substance: ASPIRIN
  6. HYDROCHLOROTHIAZIDE. [Concomitant]
     Active Substance: HYDROCHLOROTHIAZIDE
  7. PROCHLORPERAZINE. [Concomitant]
     Active Substance: PROCHLORPERAZINE
  8. GABAPENTIN. [Concomitant]
     Active Substance: GABAPENTIN
  9. FORTAMET [Concomitant]
     Active Substance: METFORMIN HYDROCHLORIDE
  10. ATROVENT NFA [Concomitant]
  11. LIPITOR [Concomitant]
     Active Substance: ATORVASTATIN CALCIUM
  12. LENALIDOMIDE [Suspect]
     Active Substance: LENALIDOMIDE
  13. LISINOPRIL. [Concomitant]
     Active Substance: LISINOPRIL
  14. COREG [Concomitant]
     Active Substance: CARVEDILOL

REACTIONS (5)
  - Basal cell carcinoma [None]
  - Ecchymosis [None]
  - Anogenital warts [None]
  - Skin toxicity [None]
  - Herpes zoster [None]

NARRATIVE: CASE EVENT DATE: 20140828
